FAERS Safety Report 9153461 (Version 1)
Quarter: 2013Q1

REPORT INFORMATION
  Report Type: Spontaneous
  Country: US (occurrence: None)
  Receive Date: 20130306
  Receipt Date: 20130306
  Transmission Date: 20140127
  Serious: Yes (Other)
  Sender: FDA-Public Use
  Company Number: None

PATIENT
  Age: 33 Year
  Sex: Female
  Weight: 76.2 kg

DRUGS (2)
  1. BUPROPION HYDROCHLORIDE [Suspect]
     Indication: DEPRESSION
     Route: 048
     Dates: start: 20130128, end: 20130302
  2. BUPROPION HYDROCHLORIDE [Suspect]
     Indication: DYSTHYMIC DISORDER
     Route: 048
     Dates: start: 20130128, end: 20130302

REACTIONS (8)
  - Migraine [None]
  - Aura [None]
  - Insomnia [None]
  - Product substitution issue [None]
  - Pollakiuria [None]
  - Vision blurred [None]
  - Urticaria [None]
  - Lip swelling [None]
